FAERS Safety Report 25754239 (Version 1)
Quarter: 2025Q3

REPORT INFORMATION
  Report Type: Spontaneous
  Country: BR (occurrence: BR)
  Receive Date: 20250903
  Receipt Date: 20250903
  Transmission Date: 20251021
  Serious: Yes (Hospitalization)
  Sender: ROCHE
  Company Number: BR-ROCHE-10000375091

PATIENT
  Age: 27 Year
  Sex: Male
  Weight: 78 kg

DRUGS (5)
  1. EMICIZUMAB [Suspect]
     Active Substance: EMICIZUMAB
     Indication: Factor VIII deficiency
     Route: 058
     Dates: start: 20211130
  2. COAGULATION FACTOR VIIA HUMAN [Concomitant]
     Active Substance: COAGULATION FACTOR VIIA HUMAN
     Indication: Factor VIII deficiency
     Dosage: 90 MICROGRAMS PER KILOGRAM EVERY THREE HOURS FROM DAY 1 TO DAY 3
  3. COAGULATION FACTOR VIIA HUMAN [Concomitant]
     Active Substance: COAGULATION FACTOR VIIA HUMAN
     Dosage: 90 MICROGRAMS PER KILOGRAM EVERY FOUR HOURS FROM DAY 4 TO DAY 7
  4. COAGULATION FACTOR VIIA HUMAN [Concomitant]
     Active Substance: COAGULATION FACTOR VIIA HUMAN
     Dosage: 90 MICROGRAMS PER KILOGRAM EVERY EIGHT HOURS FROM DAY 8 TO DAY 14
  5. COAGULATION FACTOR VIIA HUMAN [Concomitant]
     Active Substance: COAGULATION FACTOR VIIA HUMAN

REACTIONS (4)
  - Generalised anxiety disorder [Recovered/Resolved]
  - Post procedural oedema [Recovered/Resolved]
  - Procedural pain [Recovered/Resolved]
  - Haemoglobin decreased [Recovered/Resolved]
